FAERS Safety Report 5731480-7 (Version None)
Quarter: 2008Q2

REPORT INFORMATION
  Report Type: 
  Country: None (occurrence: None)
  Receive Date: 20080506
  Receipt Date: 20080428
  Transmission Date: 20081010
  Serious: Yes (Hospitalization)
  Sender: FDA-Public Use
  Company Number: 2008-01462

PATIENT
  Age: 57 Year
  Sex: Male
  Weight: 83.9 kg

DRUGS (5)
  1. VELCADE [Suspect]
     Indication: MULTIPLE MYELOMA
     Dosage: IV BOLUS; 2 MG, IV BOLUS
     Route: 040
     Dates: start: 20061001, end: 20061101
  2. VELCADE [Suspect]
     Indication: MULTIPLE MYELOMA
     Dosage: IV BOLUS; 2 MG, IV BOLUS
     Route: 040
     Dates: start: 20070701
  3. REVLIMID [Concomitant]
  4. ZOMETA [Concomitant]
  5. ACYCLOVIR [Concomitant]

REACTIONS (5)
  - CHEST DISCOMFORT [None]
  - COUGH [None]
  - DISEASE PROGRESSION [None]
  - UPPER RESPIRATORY TRACT INFECTION [None]
  - WHEEZING [None]
